FAERS Safety Report 18959270 (Version 2)
Quarter: 2021Q3

REPORT INFORMATION
  Report Type: Spontaneous
  Country: US (occurrence: US)
  Receive Date: 20210302
  Receipt Date: 20210723
  Transmission Date: 20211014
  Serious: Yes (Other)
  Sender: FDA-Public Use
  Company Number: US-ASTRAZENECA-2021A081139

PATIENT
  Age: 43 Year
  Sex: Female
  Weight: 129.3 kg

DRUGS (59)
  1. ATORVASTATIN [Concomitant]
     Active Substance: ATORVASTATIN
     Indication: BLOOD CHOLESTEROL INCREASED
     Dates: start: 200811
  2. METHYLPREDNISOLONE. [Concomitant]
     Active Substance: METHYLPREDNISOLONE
  3. PAXIL [Concomitant]
     Active Substance: PAROXETINE HYDROCHLORIDE
  4. ESCITALOPRAM [Concomitant]
     Active Substance: ESCITALOPRAM OXALATE
  5. FLUTICASONE. [Concomitant]
     Active Substance: FLUTICASONE
  6. BREO ELLIPTA [Concomitant]
     Active Substance: FLUTICASONE FUROATE\VILANTEROL TRIFENATATE
  7. PRILOSEC [Suspect]
     Active Substance: OMEPRAZOLE MAGNESIUM
     Indication: GASTROOESOPHAGEAL REFLUX DISEASE
     Route: 048
     Dates: start: 200405
  8. LISINOPRIL. [Concomitant]
     Active Substance: LISINOPRIL
     Indication: BLOOD PRESSURE MEASUREMENT
     Dates: start: 201810
  9. ASPIRIN. [Concomitant]
     Active Substance: ASPIRIN
     Indication: CARDIAC DISORDER
     Dates: start: 201605
  10. RANITIDINE. [Concomitant]
     Active Substance: RANITIDINE
     Dates: start: 201710
  11. CYCLOBENZAPRINE. [Concomitant]
     Active Substance: CYCLOBENZAPRINE
  12. CLARITIN [Concomitant]
     Active Substance: LORATADINE
  13. ZITHROMAX [Concomitant]
     Active Substance: AZITHROMYCIN DIHYDRATE
  14. ESTRADIOL. [Concomitant]
     Active Substance: ESTRADIOL
  15. AMOX TR?CLAV [Concomitant]
  16. NYSTATIN?TRAIMCINOLONE [Concomitant]
  17. BIAXIN [Concomitant]
     Active Substance: CLARITHROMYCIN
  18. PREVACID [Suspect]
     Active Substance: LANSOPRAZOLE
     Indication: GASTROOESOPHAGEAL REFLUX DISEASE
     Route: 065
     Dates: start: 2002
  19. PANTOPRAZOLE [Suspect]
     Active Substance: PANTOPRAZOLE
     Indication: GASTROOESOPHAGEAL REFLUX DISEASE
     Dosage: GENERIC
     Route: 065
     Dates: end: 2018
  20. MULTIVITAMINS [Concomitant]
     Active Substance: VITAMINS
     Indication: SUPPLEMENTATION THERAPY
     Dates: start: 201605
  21. SINGULAIR [Concomitant]
     Active Substance: MONTELUKAST SODIUM
  22. JARDIANCE [Concomitant]
     Active Substance: EMPAGLIFLOZIN
  23. NEXIUM [Suspect]
     Active Substance: ESOMEPRAZOLE MAGNESIUM
     Indication: GASTROOESOPHAGEAL REFLUX DISEASE
     Route: 048
     Dates: start: 2001
  24. HYDROCODONE BITARTRATE AND ACETAMINOPHEN [Concomitant]
     Active Substance: ACETAMINOPHEN\HYDROCODONE BITARTRATE
  25. METFORMIN [Concomitant]
     Active Substance: METFORMIN HYDROCHLORIDE
  26. AVELOX [Concomitant]
     Active Substance: MOXIFLOXACIN HYDROCHLORIDE
  27. ONDANSETRON [Concomitant]
     Active Substance: ONDANSETRON
  28. VENLAFAXINE [Concomitant]
     Active Substance: VENLAFAXINE HYDROCHLORIDE
  29. NEOMYCIN/ACETIC ACID/DEXAMETHASONE [Concomitant]
  30. TRAMADOL. [Concomitant]
     Active Substance: TRAMADOL
     Indication: PAIN
     Dates: start: 201607
  31. AMOXICILLIN. [Concomitant]
     Active Substance: AMOXICILLIN
     Indication: INFECTION
     Dates: start: 202011, end: 202011
  32. CIPRO [Concomitant]
     Active Substance: CIPROFLOXACIN HYDROCHLORIDE
  33. DICLOFENAC [Concomitant]
     Active Substance: DICLOFENAC
  34. PENICILLIN VK [Concomitant]
     Active Substance: PENICILLIN V POTASSIUM
  35. TOPIRAMATE. [Concomitant]
     Active Substance: TOPIRAMATE
  36. XARELTO [Concomitant]
     Active Substance: RIVAROXABAN
  37. IODINE. [Concomitant]
     Active Substance: IODINE
  38. LIDOCAINE. [Concomitant]
     Active Substance: LIDOCAINE
  39. ACETAMINOPHEN. [Concomitant]
     Active Substance: ACETAMINOPHEN
     Indication: ARTHRITIS
     Dates: start: 201803
  40. FAMOTIDINE. [Concomitant]
     Active Substance: FAMOTIDINE
     Dates: start: 201611
  41. CELEBREX [Concomitant]
     Active Substance: CELECOXIB
  42. ZYRTEC [Concomitant]
     Active Substance: CETIRIZINE HYDROCHLORIDE
  43. VIOXX [Concomitant]
     Active Substance: ROFECOXIB
  44. ALBUTEROL. [Concomitant]
     Active Substance: ALBUTEROL
  45. GUAIFENESIN. [Concomitant]
     Active Substance: GUAIFENESIN
  46. SEROQUEL [Concomitant]
     Active Substance: QUETIAPINE FUMARATE
  47. JANUMET [Concomitant]
     Active Substance: METFORMIN HYDROCHLORIDE\SITAGLIPTIN PHOSPHATE
  48. ARIPIPRAZOLE. [Concomitant]
     Active Substance: ARIPIPRAZOLE
  49. DICYCLOMINE [Concomitant]
     Active Substance: DICYCLOMINE HYDROCHLORIDE
  50. PANTOPRAZOLE [Suspect]
     Active Substance: PANTOPRAZOLE
     Indication: GASTROOESOPHAGEAL REFLUX DISEASE
     Dosage: GENERIC
     Route: 065
  51. NAPROXEN. [Concomitant]
     Active Substance: NAPROXEN
     Indication: PAIN
     Dates: start: 201808
  52. CEPHALEXIN. [Concomitant]
     Active Substance: CEPHALEXIN
     Indication: INFECTION
     Dates: start: 202011, end: 202011
  53. NASONEX [Concomitant]
     Active Substance: MOMETASONE FUROATE
  54. METRONIDAZOLE. [Concomitant]
     Active Substance: METRONIDAZOLE
  55. BUSPIRONE [Concomitant]
     Active Substance: BUSPIRONE HYDROCHLORIDE
  56. QUINAPRIL. [Concomitant]
     Active Substance: QUINAPRIL
  57. BACLOFEN. [Concomitant]
     Active Substance: BACLOFEN
  58. BENZONATATE. [Concomitant]
     Active Substance: BENZONATATE
  59. MULTIVITMAINS [Concomitant]

REACTIONS (3)
  - Chronic kidney disease [Not Recovered/Not Resolved]
  - Gastrooesophageal reflux disease [Not Recovered/Not Resolved]
  - Renal failure [Unknown]

NARRATIVE: CASE EVENT DATE: 2013
